FAERS Safety Report 5318041-9 (Version None)
Quarter: 2007Q2

REPORT INFORMATION
  Report Type: 
  Country: None (occurrence: None)
  Receive Date: 20070504
  Receipt Date: 20070504
  Transmission Date: 20071010
  Serious: Yes (Hospitalization)
  Sender: FDA-Public Use
  Company Number: None

PATIENT
  Age: 56 Year
  Sex: Female
  Weight: 68.0396 kg

DRUGS (1)
  1. VENLAFAXINE HCL [Suspect]
     Dosage: 150 MG BID PO
     Route: 048
     Dates: start: 20060101

REACTIONS (1)
  - CONVULSION [None]
